FAERS Safety Report 5090998-3 (Version None)
Quarter: 2006Q3

REPORT INFORMATION
  Report Type: 
  Country: None (occurrence: None)
  Receive Date: 20060829
  Receipt Date: 20060821
  Transmission Date: 20061208
  Serious: Yes (Other)
  Sender: FDA-Public Use
  Company Number: US-JNJFOC-20060804797

PATIENT
  Sex: Male

DRUGS (13)
  1. REMICADE [Suspect]
     Route: 042
  2. REMICADE [Suspect]
     Route: 042
  3. REMICADE [Suspect]
     Route: 042
  4. REMICADE [Suspect]
     Route: 042
  5. REMICADE [Suspect]
     Route: 042
  6. REMICADE [Suspect]
     Route: 042
  7. REMICADE [Suspect]
     Route: 042
  8. REMICADE [Suspect]
     Indication: RHEUMATOID ARTHRITIS
     Route: 042
  9. METHOTREXATE [Concomitant]
  10. METHOTREXATE [Concomitant]
  11. ARAVA [Concomitant]
  12. ARAVA [Concomitant]
  13. PREDNISONE TAB [Concomitant]

REACTIONS (4)
  - BACK PAIN [None]
  - CHRONIC LYMPHOCYTIC LEUKAEMIA [None]
  - LYMPHOCYTIC LYMPHOMA [None]
  - POSTOPERATIVE INFECTION [None]
